FAERS Safety Report 8589678-9 (Version None)
Quarter: 2012Q3

REPORT INFORMATION
  Report Type: 
  Country: None (occurrence: None)
  Receive Date: 20120813
  Receipt Date: 20120807
  Transmission Date: 20120928
  Serious: Yes (Other)
  Sender: FDA-Public Use
  Company Number: JP-ROCHE-1088902

PATIENT
  Sex: Male

DRUGS (7)
  1. CANDESARTAN CILEXETIL [Concomitant]
     Indication: HYPERTENSION
     Route: 048
  2. VITAMIN B12 [Concomitant]
     Indication: PERIPHERAL NERVE LESION
     Route: 048
  3. MIRCERA [Suspect]
     Indication: NEPHROGENIC ANAEMIA
     Route: 058
     Dates: start: 20120405, end: 20120531
  4. SODIUM BICARBONATE [Concomitant]
     Indication: RENAL FAILURE CHRONIC
     Route: 048
  5. AMLODIPINE [Concomitant]
     Indication: HYPERTENSION
     Route: 048
  6. FOLIC ACID [Concomitant]
     Indication: FOLATE DEFICIENCY
     Route: 048
  7. URINORM [Concomitant]
     Indication: HYPERURICAEMIA
     Route: 048

REACTIONS (1)
  - HAEMOGLOBIN DECREASED [None]
